FAERS Safety Report 24190820 (Version 1)
Quarter: 2024Q3

REPORT INFORMATION
  Report Type: Spontaneous
  Country: SA (occurrence: SA)
  Receive Date: 20240808
  Receipt Date: 20240808
  Transmission Date: 20241016
  Serious: Yes (Other)
  Sender: AMERICAN REGENT
  Company Number: SA-AMERICAN REGENT INC-2024003029

PATIENT
  Age: 35 Year
  Sex: Female

DRUGS (1)
  1. VENOFER [Suspect]
     Active Substance: IRON SUCROSE
     Indication: Iron deficiency anaemia
     Dosage: 2 AMPOULE PER DAY (2 DOSAGE FORMS,1 IN 1 D)
     Route: 042

REACTIONS (1)
  - Adverse event [Recovered/Resolved]
